FAERS Safety Report 24994987 (Version 1)
Quarter: 2025Q1

REPORT INFORMATION
  Report Type: Report from Study
  Country: ES (occurrence: ES)
  Receive Date: 20250221
  Receipt Date: 20250221
  Transmission Date: 20250408
  Serious: Yes (Death)
  Sender: ABBVIE
  Company Number: ES-ABBVIE-5850797

PATIENT
  Age: 59 Year
  Sex: Male

DRUGS (1)
  1. CARBIDOPA\LEVODOPA [Suspect]
     Active Substance: CARBIDOPA\LEVODOPA
     Indication: Parkinson^s disease
     Route: 058
     Dates: start: 20240301, end: 202407

REACTIONS (4)
  - Death [Fatal]
  - Abnormal behaviour [Unknown]
  - Nervousness [Unknown]
  - Incoherent [Unknown]

NARRATIVE: CASE EVENT DATE: 20240101
